FAERS Safety Report 8214588-6 (Version None)
Quarter: 2012Q1

REPORT INFORMATION
  Report Type: 
  Country: None (occurrence: None)
  Receive Date: 20120316
  Receipt Date: 20120308
  Transmission Date: 20120608
  Serious: Yes (Hospitalization, Other)
  Sender: FDA-Public Use
  Company Number: JP-VERTEX PHARMACEUTICALS INC.-AE-2012-002913

PATIENT
  Age: 57 Year
  Sex: Male

DRUGS (8)
  1. PEG-INTRON [Concomitant]
     Indication: HEPATITIS C
     Route: 058
     Dates: start: 20120217, end: 20120227
  2. CANDESARTAN CILEXETIL [Concomitant]
     Route: 048
  3. ATELEC [Concomitant]
     Route: 048
  4. LOXONIN [Concomitant]
     Route: 048
     Dates: start: 20120217, end: 20120217
  5. MUCOSTA [Concomitant]
     Route: 048
     Dates: start: 20120218
  6. GLYCYRON [Concomitant]
     Route: 048
  7. TELAVIC (TELAPREVIR) [Suspect]
     Indication: HEPATITIS C
     Route: 048
     Dates: start: 20120217, end: 20120227
  8. RIBAVIRIN [Concomitant]
     Indication: HEPATITIS C
     Route: 048
     Dates: start: 20120217, end: 20120227

REACTIONS (5)
  - RENAL IMPAIRMENT [None]
  - DRUG ERUPTION [None]
  - PLATELET COUNT DECREASED [None]
  - ASTHENIA [None]
  - DECREASED APPETITE [None]
